FAERS Safety Report 11246993 (Version 1)
Quarter: 2015Q3

REPORT INFORMATION
  Report Type: Spontaneous
  Country: US (occurrence: None)
  Receive Date: 20150706
  Receipt Date: 20150706
  Transmission Date: 20151125
  Serious: Yes (Life-Threatening, Hospitalization, Other)
  Sender: FDA-Public Use
  Company Number: None

PATIENT
  Age: 73 Year
  Sex: Female
  Weight: 65.77 kg

DRUGS (17)
  1. DILIAZEM [Concomitant]
  2. VITAMIN B12 [Concomitant]
     Active Substance: CYANOCOBALAMIN
  3. CLINDAMYCIN [Suspect]
     Active Substance: CLINDAMYCIN\CLINDAMYCIN PHOSPHATE
     Indication: ROOT CANAL INFECTION
     Dosage: TAKEN BY MOUTH
     Dates: start: 20100915, end: 20100925
  4. ESPINASTINE HCL [Concomitant]
  5. C LUTON [Concomitant]
  6. TURMERIC CUR [Concomitant]
  7. WOMEN 50+ MULTIVITAMINS [Concomitant]
  8. ZEAXANTHIN [Concomitant]
     Active Substance: ZEAXANTHIN
  9. COQ10 [Concomitant]
     Active Substance: UBIDECARENONE
  10. FLAXSEED [Concomitant]
     Active Substance: FLAX SEED
  11. VITAMIN B COMPLEX [Concomitant]
     Active Substance: CYANOCOBALAMIN\DEXPANTHENOL\NIACINAMIDE\PYRIDOXINE HYDROCHLORIDE\RIBOFLAVIN 5^-PHOSPHATE SODIUM\THIAMINE HYDROCHLORIDE\VITAMIN B COMPLEX
  12. CULTURALLY PROBIOTIC [Concomitant]
  13. IRON [Concomitant]
     Active Substance: IRON
  14. CUMIN. [Concomitant]
     Active Substance: CUMIN
  15. L-THYROXIN [Concomitant]
     Active Substance: LEVOTHYROXINE SODIUM
  16. ATORVASTATIN [Concomitant]
     Active Substance: ATORVASTATIN
  17. FLUTICASONE [Concomitant]
     Active Substance: FLUTICASONE\FLUTICASONE PROPIONATE

REACTIONS (11)
  - Haematochezia [None]
  - Blood glucose increased [None]
  - Asthenia [None]
  - Diarrhoea [None]
  - Weight decreased [None]
  - Malaise [None]
  - Atrial fibrillation [None]
  - Loss of employment [None]
  - Abasia [None]
  - Drug ineffective [None]
  - Vision blurred [None]

NARRATIVE: CASE EVENT DATE: 20100915
